FAERS Safety Report 13627922 (Version 1)
Quarter: 2017Q2

REPORT INFORMATION
  Report Type: Spontaneous
  Country: US (occurrence: US)
  Receive Date: 20170531
  Receipt Date: 20170531
  Transmission Date: 20170830
  Serious: Yes (Hospitalization)
  Sender: FDA-Public Use
  Company Number: US-ASTELLAS-1631845

PATIENT
  Sex: Male
  Weight: 48.12 kg

DRUGS (22)
  1. PEMETREXED. [Suspect]
     Active Substance: PEMETREXED
     Indication: PRODUCT USED FOR UNKNOWN INDICATION
     Route: 065
  2. PREDNISONE. [Concomitant]
     Active Substance: PREDNISONE
     Dosage: AS DIRECTED
     Route: 048
  3. OXYCODONE HYDROCHLORIDE. [Concomitant]
     Active Substance: OXYCODONE HYDROCHLORIDE
     Dosage: AS DIRECTED
     Route: 048
  4. ALBUTEROL SULFATE. [Concomitant]
     Active Substance: ALBUTEROL SULFATE
     Dosage: (2.5MG/3ML) 0.083%), NEBULIZATION SOLUTION INHALATION AS DIRECTED
     Route: 065
  5. CARBOPLATIN. [Suspect]
     Active Substance: CARBOPLATIN
     Indication: PRODUCT USED FOR UNKNOWN INDICATION
     Route: 065
  6. TARCEVA [Suspect]
     Active Substance: ERLOTINIB HYDROCHLORIDE
     Indication: LUNG ADENOCARCINOMA
     Route: 065
     Dates: start: 20130123
  7. HYDROCHLOROTHIAZIDE. [Concomitant]
     Active Substance: HYDROCHLOROTHIAZIDE
     Route: 048
  8. ACETAMINOPHEN/HYDROCODONE [Concomitant]
     Active Substance: ACETAMINOPHEN\HYDROCODONE
     Dosage: (5-325 MG)  AS DIRECTED
     Route: 048
  9. TARCEVA [Suspect]
     Active Substance: ERLOTINIB HYDROCHLORIDE
     Indication: MALIGNANT PLEURAL EFFUSION
  10. MEGACE [Concomitant]
     Active Substance: MEGESTROL ACETATE
     Dosage: 10 CC (OF 40 MG/ML) SUSPENSION FOR 30 DAYS
     Route: 048
  11. SIMVASTATIN. [Concomitant]
     Active Substance: SIMVASTATIN
     Route: 048
  12. ATENOLOL. [Concomitant]
     Active Substance: ATENOLOL
     Route: 048
  13. FOLIC ACID. [Concomitant]
     Active Substance: FOLIC ACID
     Dosage: 1000 MCG (OF 2000 MCG)
     Route: 048
  14. MORPHINE SULPHATE [Concomitant]
     Active Substance: MORPHINE SULFATE
     Dosage: SR 12 HR AS DIRECTED.
     Route: 048
  15. MORPHINE SULPHATE [Concomitant]
     Active Substance: MORPHINE SULFATE
     Dosage: AS DIRECTED
     Route: 048
  16. TARCEVA [Suspect]
     Active Substance: ERLOTINIB HYDROCHLORIDE
     Indication: LUNG NEOPLASM MALIGNANT
  17. OMEPRAZOLE. [Concomitant]
     Active Substance: OMEPRAZOLE
     Route: 048
  18. POTASSIUM CHLORIDE. [Concomitant]
     Active Substance: POTASSIUM CHLORIDE
     Route: 048
  19. PROCHLORPERAZINE MALEATE. [Concomitant]
     Active Substance: PROCHLORPERAZINE MALEATE
     Dosage: 5 MG (OF 5 MG) 6 X/D, PRN
     Route: 048
  20. ASPIRIN. [Concomitant]
     Active Substance: ASPIRIN
     Route: 048
  21. DOCETAXEL. [Suspect]
     Active Substance: DOCETAXEL
     Indication: PRODUCT USED FOR UNKNOWN INDICATION
     Route: 065
  22. LORAZEPAM. [Concomitant]
     Active Substance: LORAZEPAM
     Dosage: AS DIRECTED
     Route: 048

REACTIONS (2)
  - Dyspnoea [Unknown]
  - Pneumonia [Unknown]
